FAERS Safety Report 5271641-7 (Version None)
Quarter: 2007Q1

REPORT INFORMATION
  Report Type: 
  Country: None (occurrence: None)
  Receive Date: 20070321
  Receipt Date: 20070312
  Transmission Date: 20070707
  Serious: Yes (Other)
  Sender: FDA-Public Use
  Company Number: US-PFIZER INC-2007018703

PATIENT
  Sex: Male

DRUGS (1)
  1. QUINAPRIL HCL [Suspect]

REACTIONS (3)
  - DIABETES MELLITUS [None]
  - DRY MOUTH [None]
  - VISION BLURRED [None]
